FAERS Safety Report 5135545-2 (Version None)
Quarter: 2006Q4

REPORT INFORMATION
  Report Type: 
  Country: None (occurrence: None)
  Receive Date: 20061026
  Receipt Date: 20061017
  Transmission Date: 20070319
  Serious: Yes (Hospitalization)
  Sender: FDA-Public Use
  Company Number: GB-ELI_LILLY_AND_COMPANY-GB200610003177

PATIENT

DRUGS (1)
  1. ALIMTA [Suspect]

REACTIONS (1)
  - BLOOD MAGNESIUM DECREASED [None]
